FAERS Safety Report 16935804 (Version 1)
Quarter: 2019Q4

REPORT INFORMATION
  Report Type: Spontaneous
  Country: US (occurrence: US)
  Receive Date: 20191018
  Receipt Date: 20191018
  Transmission Date: 20200122
  Serious: Yes (Life-Threatening, Hospitalization)
  Sender: FDA-Public Use
  Company Number: None

PATIENT
  Age: 77 Year
  Sex: Female
  Weight: 96.7 kg

DRUGS (3)
  1. HYDROMORPHONE [Suspect]
     Active Substance: HYDROMORPHONE
     Indication: PROCEDURAL PAIN
     Dosage: ?          OTHER FREQUENCY:ONCE;?
     Route: 042
     Dates: start: 20190614, end: 20190614
  2. MORPHINE 4MG [Suspect]
     Active Substance: MORPHINE
     Dates: start: 20190614, end: 20190614
  3. OXYCODONE 5MG [Suspect]
     Active Substance: OXYCODONE
     Dates: start: 20190614, end: 20190614

REACTIONS (4)
  - Respiratory depression [None]
  - Lethargy [None]
  - Mental status changes [None]
  - Bilevel positive airway pressure [None]

NARRATIVE: CASE EVENT DATE: 20190614
